FAERS Safety Report 23529213 (Version 2)
Quarter: 2024Q2

REPORT INFORMATION
  Report Type: Spontaneous
  Country: US (occurrence: US)
  Receive Date: 20240216
  Receipt Date: 20240409
  Transmission Date: 20240716
  Serious: Yes (Other)
  Sender: FDA-Public Use
  Company Number: US-BRISTOL-MYERS SQUIBB COMPANY-2024-025100

PATIENT
  Age: 82 Year
  Sex: Male

DRUGS (2)
  1. REVLIMID [Suspect]
     Active Substance: LENALIDOMIDE
     Indication: Plasma cell myeloma
     Route: 048
  2. REVLIMID [Suspect]
     Active Substance: LENALIDOMIDE
     Dosage: TAKE 1 CAPSULE BY MOUTH EVERY DAY FOR 7 DAYS THEN OFF FOR 7 DAYS THEN REPEAT FOR 28 DAY CYCLE
     Route: 048

REACTIONS (9)
  - Blood test abnormal [Recovered/Resolved]
  - Slow speech [Unknown]
  - Thinking abnormal [Unknown]
  - Confusional state [Unknown]
  - Platelet count abnormal [Unknown]
  - Blood calcium abnormal [Unknown]
  - Blood potassium abnormal [Unknown]
  - Off label use [Unknown]
  - Abnormal behaviour [Unknown]
